FAERS Safety Report 6845449-2 (Version None)
Quarter: 2010Q3

REPORT INFORMATION
  Report Type: 
  Country: None (occurrence: None)
  Receive Date: 20100715
  Receipt Date: 20071004
  Transmission Date: 20110219
  Serious: No
  Sender: FDA-Public Use
  Company Number: US-PFIZER INC-2007070277

PATIENT
  Sex: Female
  Weight: 43.6 kg

DRUGS (2)
  1. CHANTIX [Suspect]
     Indication: SMOKING CESSATION THERAPY
     Dates: start: 20070630
  2. ZOFRAN [Concomitant]
     Indication: NAUSEA

REACTIONS (7)
  - AMMONIA INCREASED [None]
  - DIARRHOEA [None]
  - DRUG INTOLERANCE [None]
  - GASTROENTERITIS VIRAL [None]
  - IRRITABILITY [None]
  - MALAISE [None]
  - NAUSEA [None]
